FAERS Safety Report 18924751 (Version 1)
Quarter: 2021Q1

REPORT INFORMATION
  Report Type: Spontaneous
  Country: US (occurrence: US)
  Receive Date: 20210222
  Receipt Date: 20210222
  Transmission Date: 20210420
  Serious: Yes (Hospitalization)
  Sender: FDA-Public Use
  Company Number: US-PROGENICS PHARMACEUTICALS/LANTHEUS HOLDINGS-LMI-2021-00058

PATIENT
  Age: 3 Year
  Sex: Male
  Weight: 16 kg

DRUGS (7)
  1. POTASSIUM IODIDE. [Suspect]
     Active Substance: POTASSIUM IODIDE
     Indication: NEUROBLASTOMA RECURRENT
     Dosage: 15.6 MILLIGRAM, QD (DROPS)
     Route: 048
     Dates: start: 20201202
  2. DEXTROSE 5% AND 0.9% NORMAL SALINE [Concomitant]
     Indication: PRODUCT USED FOR UNKNOWN INDICATION
     Route: 065
  3. UNITUXIN [Suspect]
     Active Substance: DINUTUXIMAB
     Indication: NEUROBLASTOMA RECURRENT
     Dosage: (CONCENTRATION 3.5 MG/ML) 11.2 MG DAILY FOR 4 DAYS (CYCLICAL)
     Route: 042
     Dates: start: 20201208, end: 20201211
  4. HEPARIN [Concomitant]
     Active Substance: HEPARIN SODIUM
     Indication: PRODUCT USED FOR UNKNOWN INDICATION
     Dosage: UNK
     Route: 042
  5. LACTULOSE. [Concomitant]
     Active Substance: LACTULOSE
     Indication: PRODUCT USED FOR UNKNOWN INDICATION
     Dosage: UNK
     Route: 065
     Dates: start: 20210102, end: 20210104
  6. GM?CSF [Suspect]
     Active Substance: GRANULOCYTE-MACROPHAGE COLONY-STIMULATING FACTOR
     Indication: NEUROBLASTOMA RECURRENT
     Dosage: 16.5 MICROGRAM, QD
     Route: 058
     Dates: start: 20201208, end: 20201217
  7. AZEDRA [Suspect]
     Active Substance: IOBENGUANE I-131
     Indication: NEUROBLASTOMA RECURRENT
     Dosage: 272.3 MICROGRAM, SINGLE
     Route: 042
     Dates: start: 20201202, end: 20201202

REACTIONS (5)
  - Joint swelling [Unknown]
  - Arthralgia [Unknown]
  - Pain [Not Recovered/Not Resolved]
  - Disease progression [Unknown]
  - Pain in extremity [Unknown]

NARRATIVE: CASE EVENT DATE: 20201227
